FAERS Safety Report 9112553 (Version 1)
Quarter: 2013Q1

REPORT INFORMATION
  Report Type: Report from Study
  Country: US (occurrence: US)
  Receive Date: 20130211
  Receipt Date: 20130211
  Transmission Date: 20140127
  Serious: No
  Sender: FDA-Public Use
  Company Number: US-VERTEX PHARMACEUTICALS INC.-2013-001798

PATIENT
  Sex: Male

DRUGS (6)
  1. VX-950 (TELAPREVIR) [Suspect]
     Indication: HEPATITIS C
     Dosage: 750 MG, TID
     Route: 048
  2. PEGASYS [Suspect]
     Indication: HEPATITIS C
  3. RIBAPAK [Suspect]
     Indication: HEPATITIS C
     Dosage: 1000/DAY
  4. MELOXICAM [Concomitant]
     Dosage: 7.5 MG, UNK
  5. DOXAZOSIN [Concomitant]
     Dosage: 4 MG, UNK
  6. FINASTERIDE [Concomitant]
     Dosage: 1 MG, UNK

REACTIONS (3)
  - Influenza like illness [Unknown]
  - Headache [Unknown]
  - Rash [Unknown]
